FAERS Safety Report 17347709 (Version 1)
Quarter: 2020Q1

REPORT INFORMATION
  Report Type: Spontaneous
  Country: NO (occurrence: NO)
  Receive Date: 20200129
  Receipt Date: 20200129
  Transmission Date: 20200409
  Serious: Yes (Hospitalization)
  Sender: FDA-Public Use
  Company Number: NO-TEVA-2020-NO-1176540

PATIENT
  Age: 19 Year
  Sex: Male

DRUGS (2)
  1. BENZATHINE PHENOXYMETHYL PENICILLIN [Suspect]
     Active Substance: PENICILLIN V BENZATHINE
     Indication: TOOTH EXTRACTION
     Dosage: DOSAGE UNKNOWN
     Route: 048
     Dates: start: 20191029
  2. PARACETAMOL [Suspect]
     Active Substance: ACETAMINOPHEN
     Indication: TOOTHACHE
     Dosage: DOSAGE UNKNOWN
     Route: 048
     Dates: start: 201910

REACTIONS (1)
  - Stevens-Johnson syndrome [Recovered/Resolved]

NARRATIVE: CASE EVENT DATE: 201911
